FAERS Safety Report 6442608-8 (Version None)
Quarter: 2009Q4

REPORT INFORMATION
  Report Type: 
  Country: None (occurrence: None)
  Receive Date: 20091117
  Receipt Date: 20091109
  Transmission Date: 20100525
  Serious: Yes (Hospitalization)
  Sender: FDA-Public Use
  Company Number: US-JNJFOC-20091102976

PATIENT
  Sex: Female
  Weight: 84.37 kg

DRUGS (1)
  1. FENTANYL CITRATE [Suspect]
     Indication: PAIN
     Dosage: NDC#: 0781-7114-55
     Route: 062
     Dates: start: 20091001, end: 20091001

REACTIONS (6)
  - APPETITE DISORDER [None]
  - DYSSTASIA [None]
  - HYPOKINESIA [None]
  - PRODUCT QUALITY ISSUE [None]
  - URINARY INCONTINENCE [None]
  - WITHDRAWAL SYNDROME [None]
